FAERS Safety Report 10270245 (Version 1)
Quarter: 2014Q2

REPORT INFORMATION
  Report Type: Spontaneous
  Country: GB (occurrence: None)
  Receive Date: 20140627
  Receipt Date: 20140627
  Transmission Date: 20141212
  Serious: Yes (Other)
  Sender: FDA-Public Use
  Company Number: AUR-APL-2014-06696

PATIENT
  Age: 24 Year
  Sex: Female
  Weight: 60.8 kg

DRUGS (4)
  1. SERTRALINE 50MG (SERTALINE) UNKNOWN, 50MG [Suspect]
     Indication: DEPRESSION
     Route: 048
  2. CO-CODAMOL (CODEINE PHOSPHATE, PARACETAMOL) [Concomitant]
  3. COLLAGEN (COLLAGEN) [Concomitant]
  4. ECHINACEA (ECHINACEA PURPUREA) [Concomitant]

REACTIONS (5)
  - Diarrhoea [None]
  - Malabsorption [None]
  - Abnormal faeces [None]
  - Defaecation urgency [None]
  - Irritable bowel syndrome [None]
